FAERS Safety Report 14670158 (Version 1)
Quarter: 2018Q1

REPORT INFORMATION
  Report Type: Spontaneous
  Country: GB (occurrence: GB)
  Receive Date: 20180322
  Receipt Date: 20180322
  Transmission Date: 20180509
  Serious: Yes (Other)
  Sender: FDA-Public Use
  Company Number: GB-ELI_LILLY_AND_COMPANY-GB201803006053

PATIENT
  Sex: Female

DRUGS (1)
  1. HUMULIN N [Suspect]
     Active Substance: INSULIN HUMAN
     Indication: PRODUCT USED FOR UNKNOWN INDICATION
     Dosage: UNK, UNKNOWN
     Route: 065

REACTIONS (10)
  - Feeling abnormal [Unknown]
  - Lower respiratory tract infection [Unknown]
  - Pneumonia [Unknown]
  - Suicidal ideation [Unknown]
  - Sepsis [Unknown]
  - Pleurisy [Unknown]
  - Cough [Unknown]
  - Depression [Unknown]
  - Arthritis [Unknown]
  - Pain in extremity [Unknown]
